FAERS Safety Report 10108417 (Version 2)
Quarter: 2014Q2

REPORT INFORMATION
  Report Type: Spontaneous
  Country: CH (occurrence: CH)
  Receive Date: 20140425
  Receipt Date: 20140512
  Transmission Date: 20141212
  Serious: Yes (Disabling, Other)
  Sender: FDA-Public Use
  Company Number: CH-ROCHE-1389682

PATIENT
  Age: 35 Year
  Sex: Female

DRUGS (7)
  1. XOLAIR [Suspect]
     Indication: ASTHMA
     Route: 065
     Dates: start: 201402
  2. XOLAIR [Suspect]
     Route: 065
     Dates: start: 20140306, end: 20140306
  3. XOLAIR [Suspect]
     Route: 065
     Dates: start: 20140408, end: 20140408
  4. XYZAL [Concomitant]
  5. SERETIDE [Concomitant]
  6. NASONEX [Concomitant]
  7. AZITHROMYCIN [Concomitant]
     Route: 065
     Dates: start: 20131122, end: 20140306

REACTIONS (1)
  - Type 1 diabetes mellitus [Not Recovered/Not Resolved]
